FAERS Safety Report 7831471-6 (Version None)
Quarter: 2011Q4

REPORT INFORMATION
  Report Type: 
  Country: None (occurrence: None)
  Receive Date: 20111021
  Receipt Date: 20111021
  Transmission Date: 20120403
  Serious: Yes (Life-Threatening, Hospitalization)
  Sender: FDA-Public Use
  Company Number: None

PATIENT
  Age: 68 Year
  Sex: Female
  Weight: 81 kg

DRUGS (4)
  1. LIPITOR [Concomitant]
  2. SYNTHROID [Concomitant]
  3. LISINOPRIL [Concomitant]
  4. VOTRIENT [Suspect]
     Indication: RENAL CELL CARCINOMA
     Dosage: VOTRIENT 400 MG
     Route: 048
     Dates: start: 20111007, end: 20111013

REACTIONS (5)
  - GLOMERULAR FILTRATION RATE DECREASED [None]
  - POSTERIOR REVERSIBLE ENCEPHALOPATHY SYNDROME [None]
  - HYPERTENSION [None]
  - CEREBRAL INFARCTION [None]
  - SUBARACHNOID HAEMORRHAGE [None]
